FAERS Safety Report 8951326 (Version 1)
Quarter: 2012Q4

REPORT INFORMATION
  Report Type: 
  Country: PY (occurrence: PY)
  Receive Date: 20121207
  Receipt Date: 20121207
  Transmission Date: 20130627
  Serious: Yes (Hospitalization, Other)
  Sender: FDA-Public Use
  Company Number: PHHY2012PY107603

PATIENT
  Age: 40 Year
  Sex: Male
  Weight: 70 kg

DRUGS (2)
  1. GLIVEC [Suspect]
     Indication: CHRONIC MYELOID LEUKAEMIA
     Dosage: 400 mg, daily
     Route: 048
     Dates: start: 20090216, end: 20121115
  2. GLIVEC [Suspect]
     Dosage: 600 mg, daily
     Route: 048

REACTIONS (14)
  - Pyrexia [Unknown]
  - Anaemia [Unknown]
  - Pallor [Unknown]
  - Haemoglobin decreased [Unknown]
  - General physical health deterioration [Unknown]
  - Bone marrow disorder [Unknown]
  - Aplasia pure red cell [Unknown]
  - Blast crisis in myelogenous leukaemia [Not Recovered/Not Resolved]
  - Chronic myeloid leukaemia [Unknown]
  - Malignant neoplasm progression [Unknown]
  - Hepatomegaly [Unknown]
  - White blood cell count increased [Unknown]
  - Asthenia [Unknown]
  - Decreased appetite [Unknown]
